FAERS Safety Report 7958745-2 (Version None)
Quarter: 2011Q4

REPORT INFORMATION
  Report Type: 
  Country: None (occurrence: None)
  Receive Date: 20111206
  Receipt Date: 20111125
  Transmission Date: 20120403
  Serious: Yes (Life-Threatening, Hospitalization)
  Sender: FDA-Public Use
  Company Number: CA-JNJFOC-20110906120

PATIENT
  Age: 88 Year
  Sex: Male
  Weight: 54 kg

DRUGS (14)
  1. CELEXA [Concomitant]
  2. SINEMET [Concomitant]
  3. GRAVOL TAB [Concomitant]
  4. POTASSIUM CHLORIDE [Concomitant]
  5. ACETYLSALICYLIC ACID SRT [Concomitant]
  6. ATIVAN [Concomitant]
  7. COLACE [Concomitant]
  8. SENOKOT [Concomitant]
  9. VITAMIN D [Concomitant]
  10. SYNTHROID [Concomitant]
  11. XARELTO [Suspect]
     Indication: THROMBOSIS PROPHYLAXIS
     Route: 048
     Dates: start: 20110510, end: 20110518
  12. MORPHINE [Concomitant]
  13. NITROLINGUAL PUMPSPRAY [Concomitant]
  14. ACETAMINOPHEN [Concomitant]

REACTIONS (4)
  - HAEMOGLOBIN DECREASED [None]
  - ACUTE MYOCARDIAL INFARCTION [None]
  - HAEMATOMA [None]
  - HAEMATOCRIT DECREASED [None]
